FAERS Safety Report 25280163 (Version 1)
Quarter: 2025Q2

REPORT INFORMATION
  Report Type: Spontaneous
  Country: US (occurrence: US)
  Receive Date: 20250507
  Receipt Date: 20250507
  Transmission Date: 20250717
  Serious: Yes (Hospitalization)
  Sender: HLS THERAPEUTICS
  Company Number: US-HLS-202500174

PATIENT
  Age: 39 Year
  Sex: Male
  Weight: 109 kg

DRUGS (3)
  1. CLOZAPINE [Suspect]
     Active Substance: CLOZAPINE
     Indication: Schizoaffective disorder depressive type
     Dosage: 100MG 2X/DAY AND 200MG 1X/DAY
     Route: 048
  2. UNSPECIFIED INGREDIENT [Concomitant]
     Active Substance: UNSPECIFIED INGREDIENT
     Indication: Product used for unknown indication
     Route: 065
  3. DULOXETINE [Concomitant]
     Active Substance: DULOXETINE
     Indication: Product used for unknown indication
     Route: 065

REACTIONS (3)
  - Aggression [Recovered/Resolved]
  - Treatment noncompliance [Recovered/Resolved]
  - Psychotic disorder [Recovered/Resolved]

NARRATIVE: CASE EVENT DATE: 20241219
